FAERS Safety Report 8201874-9 (Version None)
Quarter: 2012Q1

REPORT INFORMATION
  Report Type: 
  Country: None (occurrence: None)
  Receive Date: 20120312
  Receipt Date: 20120307
  Transmission Date: 20120608
  Serious: Yes (Other)
  Sender: FDA-Public Use
  Company Number: DE-BAXTER-2011BH038539

PATIENT
  Age: 42 Year
  Sex: Male

DRUGS (19)
  1. DEXPANTHENOL [Suspect]
     Indication: PRODUCT USED FOR UNKNOWN INDICATION
     Route: 065
     Dates: start: 20100705
  2. SODIUM CHLORIDE 0.9% IN PLASTIC CONTAINER [Suspect]
     Indication: LARYNGITIS
     Route: 042
     Dates: start: 20100705
  3. AMINOFUSIN HEPAR [Suspect]
     Indication: CHRONIC FATIGUE SYNDROME
     Route: 042
     Dates: start: 20100705
  4. AMINOFUSIN HEPAR [Suspect]
     Route: 042
  5. SODIUM CHLORIDE 0.9% IN PLASTIC CONTAINER [Suspect]
     Indication: CHRONIC FATIGUE SYNDROME
     Route: 042
     Dates: start: 20100705
  6. VITAMIN B6 [Suspect]
     Indication: PRODUCT USED FOR UNKNOWN INDICATION
     Route: 065
     Dates: start: 20100705
  7. MAGNESIUM SULFATE [Suspect]
     Indication: PRODUCT USED FOR UNKNOWN INDICATION
     Route: 065
     Dates: start: 20100705
  8. MULTI-VITAMINS [Suspect]
     Indication: PRODUCT USED FOR UNKNOWN INDICATION
     Route: 065
     Dates: start: 20100705
  9. AMINOFUSIN HEPAR [Suspect]
     Route: 042
  10. SODIUM CHLORIDE 0.9% IN PLASTIC CONTAINER [Suspect]
     Indication: IMMUNODEFICIENCY
     Route: 042
     Dates: start: 20100705
  11. SODIUM CHLORIDE 0.9% IN PLASTIC CONTAINER [Suspect]
     Route: 042
  12. AMINOFUSIN HEPAR [Suspect]
     Route: 042
  13. SODIUM CHLORIDE 0.9% IN PLASTIC CONTAINER [Suspect]
     Route: 042
  14. SODIUM CHLORIDE 0.9% IN PLASTIC CONTAINER [Suspect]
     Route: 042
  15. AMINOFUSIN HEPAR [Suspect]
     Indication: IMMUNODEFICIENCY
     Route: 042
     Dates: start: 20100705
  16. AMINOFUSIN HEPAR [Suspect]
     Indication: LARYNGITIS
     Route: 042
     Dates: start: 20100705
  17. CALCIUM [Suspect]
     Indication: PRODUCT USED FOR UNKNOWN INDICATION
     Route: 065
     Dates: start: 20100705
  18. VITAMIN B-12 [Suspect]
     Indication: PRODUCT USED FOR UNKNOWN INDICATION
     Route: 065
     Dates: start: 20100705
  19. ASCORBIC ACID [Suspect]
     Indication: PRODUCT USED FOR UNKNOWN INDICATION
     Route: 065
     Dates: start: 20100705

REACTIONS (7)
  - ACINETOBACTER TEST POSITIVE [None]
  - NAUSEA [None]
  - VOMITING [None]
  - DRUG ADMINISTRATION ERROR [None]
  - PRODUCT COMPOUNDING QUALITY ISSUE [None]
  - SEPSIS [None]
  - TREMOR [None]
